FAERS Safety Report 10235387 (Version 1)
Quarter: 2014Q2

REPORT INFORMATION
  Report Type: Spontaneous
  Country: US (occurrence: None)
  Receive Date: 20140612
  Receipt Date: 20140612
  Transmission Date: 20141212
  Serious: Yes (Disabling)
  Sender: FDA-Public Use
  Company Number: None

PATIENT
  Age: 60 Year
  Sex: Female
  Weight: 63.5 kg

DRUGS (1)
  1. SIMVASTATIN [Suspect]
     Indication: DIABETES MELLITUS
     Dosage: 1 PILL ONCE DAILY  TAKEN BY MOUTH
     Route: 048

REACTIONS (4)
  - Asthenia [None]
  - Pain [None]
  - Fatigue [None]
  - Dysstasia [None]
